FAERS Safety Report 16757937 (Version 2)
Quarter: 2019Q3

REPORT INFORMATION
  Report Type: Spontaneous
  Country: FR (occurrence: FR)
  Receive Date: 20190830
  Receipt Date: 20190920
  Transmission Date: 20191005
  Serious: Yes (Other)
  Sender: FDA-Public Use
  Company Number: FR-SA-2019SA238868

PATIENT
  Age: 50 Year
  Sex: Female

DRUGS (3)
  1. THYROGEN [Suspect]
     Active Substance: THYROTROPIN ALFA
     Indication: RADIOACTIVE IODINE THERAPY
  2. THYROGEN [Suspect]
     Active Substance: THYROTROPIN ALFA
     Indication: THYROID DISORDER
     Dosage: 1 VIAL, QD
     Route: 030
     Dates: start: 20160917, end: 20160918
  3. LEVOTHYROX [Concomitant]
     Active Substance: LEVOTHYROXINE
     Indication: POST PROCEDURAL HYPOTHYROIDISM
     Dosage: 75 UG, QD
     Route: 048
     Dates: start: 20150929

REACTIONS (3)
  - Suicidal ideation [Recovered/Resolved]
  - Depression [Recovered/Resolved]
  - Asthenia [Unknown]

NARRATIVE: CASE EVENT DATE: 2016
